FAERS Safety Report 10061265 (Version 1)
Quarter: 2014Q2

REPORT INFORMATION
  Report Type: Spontaneous
  Country: GB (occurrence: GB)
  Receive Date: 20140407
  Receipt Date: 20140407
  Transmission Date: 20141212
  Serious: Yes (Death, Other)
  Sender: FDA-Public Use
  Company Number: GB-DRREDDYS-GER/UKI/14/0039431

PATIENT
  Age: 20 Year
  Sex: Female
  Weight: 60 kg

DRUGS (6)
  1. FLUOXETINE [Suspect]
     Indication: ANXIETY
     Route: 048
     Dates: start: 20121130, end: 20130203
  2. FLUOXETINE [Suspect]
     Indication: DEPRESSION
  3. DIANETTE [Concomitant]
     Indication: ACNE
     Route: 048
     Dates: start: 20120202, end: 20121130
  4. GEDAREL [Concomitant]
     Indication: PRODUCT USED FOR UNKNOWN INDICATION
  5. PROPRANOLOL HYDROCHLORIDE [Concomitant]
     Indication: ANXIETY
  6. PROPRANOLOL HYDROCHLORIDE [Concomitant]
     Indication: DEPRESSION

REACTIONS (4)
  - Completed suicide [Fatal]
  - Personality change [Not Recovered/Not Resolved]
  - Mydriasis [Not Recovered/Not Resolved]
  - Intentional overdose [Unknown]
